FAERS Safety Report 7200395-X (Version None)
Quarter: 2010Q4

REPORT INFORMATION
  Report Type: 
  Country: None (occurrence: None)
  Receive Date: 20101228
  Receipt Date: 20101227
  Transmission Date: 20110411
  Serious: Yes (Other)
  Sender: FDA-Public Use
  Company Number: CN-PFIZER INC-2010177155

PATIENT
  Age: 18 Year
  Sex: Male

DRUGS (1)
  1. CEFOPERAZONE SODIUM [Suspect]
     Indication: ANTI-INFECTIVE THERAPY
     Dosage: UNK
     Route: 041
     Dates: start: 20021002

REACTIONS (1)
  - ANAPHYLACTIC SHOCK [None]
